FAERS Safety Report 6042230-1 (Version None)
Quarter: 2009Q1

REPORT INFORMATION
  Report Type: 
  Country: None (occurrence: None)
  Receive Date: 20090116
  Receipt Date: 20090115
  Transmission Date: 20090719
  Serious: Yes (Life-Threatening)
  Sender: FDA-Public Use
  Company Number: CA-ASTRAZENECA-2009UW01282

PATIENT
  Age: 73 Year
  Sex: Male
  Weight: 86 kg

DRUGS (16)
  1. SEROQUEL [Suspect]
     Route: 048
  2. ARICEPT [Concomitant]
  3. AVAPRO [Concomitant]
  4. FERROUS GLUCONATE [Concomitant]
  5. FLOVENT HFA [Concomitant]
  6. FUROSEMIDE [Concomitant]
  7. GLUCONORM [Concomitant]
  8. HUMALOG [Concomitant]
  9. LIPITOR [Concomitant]
  10. NORTRIPTYLINE HCL [Concomitant]
  11. NORVASC [Concomitant]
  12. NOVASEN [Concomitant]
  13. RABEPRAZOLE SODIUM [Concomitant]
  14. RATIO-MELOXICAM [Concomitant]
  15. RATIO-SALBUTAMOL [Concomitant]
  16. SENOKOT [Concomitant]

REACTIONS (9)
  - BLOOD GLUCOSE INCREASED [None]
  - CARDIAC FAILURE [None]
  - CHILLS [None]
  - INFECTION [None]
  - MUSCULOSKELETAL STIFFNESS [None]
  - MYALGIA [None]
  - PALLOR [None]
  - PNEUMONIA [None]
  - PYREXIA [None]
